FAERS Safety Report 11327198 (Version 4)
Quarter: 2015Q4

REPORT INFORMATION
  Report Type: Report from Study
  Country: US (occurrence: US)
  Receive Date: 20150731
  Receipt Date: 20151001
  Transmission Date: 20160304
  Serious: Yes (Hospitalization, Other)
  Sender: FDA-Public Use
  Company Number: US-ALEXION PHARMACEUTICALS INC.-A201502755

PATIENT

DRUGS (1)
  1. SOLIRIS [Suspect]
     Active Substance: ECULIZUMAB
     Indication: HAEMOLYTIC URAEMIC SYNDROME
     Dosage: UNK
     Route: 042

REACTIONS (11)
  - Generalised tonic-clonic seizure [Unknown]
  - Hypertension [Unknown]
  - Platelet count abnormal [Unknown]
  - Deep vein thrombosis [Unknown]
  - Unevaluable event [Unknown]
  - Cognitive disorder [Recovering/Resolving]
  - Haematocrit abnormal [Unknown]
  - Haemoglobin abnormal [Unknown]
  - Lethargy [Unknown]
  - Blood creatinine abnormal [Unknown]
  - Urinary tract infection [Unknown]

NARRATIVE: CASE EVENT DATE: 20150718
